FAERS Safety Report 9461953 (Version 1)
Quarter: 2013Q3

REPORT INFORMATION
  Report Type: Spontaneous
  Country: US (occurrence: US)
  Receive Date: 20130816
  Receipt Date: 20130816
  Transmission Date: 20140515
  Serious: No
  Sender: FDA-Public Use
  Company Number: US-BRISTOL-MYERS SQUIBB COMPANY-17244799

PATIENT
  Sex: 0

DRUGS (1)
  1. GLUCOVANCE [Suspect]
     Dosage: 1DF =5MG/500MG

REACTIONS (2)
  - Gastric disorder [Unknown]
  - Diarrhoea [Unknown]
